FAERS Safety Report 7217167-2 (Version None)
Quarter: 2010Q4

REPORT INFORMATION
  Report Type: 
  Country: None (occurrence: None)
  Receive Date: 20101230
  Receipt Date: 20101215
  Transmission Date: 20110411
  Serious: Yes (Hospitalization, Other)
  Sender: FDA-Public Use
  Company Number: 021475

PATIENT
  Sex: Male
  Weight: 79.8 kg

DRUGS (6)
  1. CIMZIA [Suspect]
     Indication: CROHN'S DISEASE
     Dosage: 400 MG 1X/MONTH SUBCUTANEOUS
     Route: 058
     Dates: start: 20100501
  2. IRON [Concomitant]
  3. ENTOCORT EC [Concomitant]
  4. HYOSCYAMINE [Concomitant]
  5. ANTIHYPERTENSIVES [Concomitant]
  6. PREDNISONE [Concomitant]

REACTIONS (12)
  - ABDOMINAL PAIN [None]
  - ASTHENIA [None]
  - DIARRHOEA [None]
  - FAECES DISCOLOURED [None]
  - MIDDLE INSOMNIA [None]
  - MUSCULOSKELETAL STIFFNESS [None]
  - NEUROENDOCRINE TUMOUR [None]
  - NO THERAPEUTIC RESPONSE [None]
  - ONCOLOGIC COMPLICATION [None]
  - PENILE PAIN [None]
  - PROCEDURAL PAIN [None]
  - WEIGHT DECREASED [None]
